FAERS Safety Report 18200591 (Version 1)
Quarter: 2020Q3

REPORT INFORMATION
  Report Type: Spontaneous
  Country: FR (occurrence: FR)
  Receive Date: 20200826
  Receipt Date: 20200826
  Transmission Date: 20201103
  Serious: Yes (Hospitalization, Other)
  Sender: FDA-Public Use
  Company Number: FR-GILEAD-2020-0491456

PATIENT
  Age: 72 Year
  Sex: Female
  Weight: 74 kg

DRUGS (17)
  1. LEVETIRACETAM. [Concomitant]
     Active Substance: LEVETIRACETAM
     Route: 042
  2. INSULIN [Concomitant]
     Active Substance: INSULIN NOS
     Route: 042
  3. PARACETAMOL [Concomitant]
     Active Substance: ACETAMINOPHEN
     Route: 042
  4. CASPOFUNGIN [Concomitant]
     Active Substance: CASPOFUNGIN
     Route: 042
  5. LIPANTHYL [Concomitant]
     Active Substance: FENOFIBRATE
     Route: 048
  6. PHOSPHONEUROS [Concomitant]
     Active Substance: CALCIUM PHOSPHATE, DIBASIC, ANHYDROUS\MAGNESIUM GLYCEROPHOSPHATE\PHOSPHORIC ACID\SODIUM PHOSPHATE, DIBASIC
     Route: 048
  7. OMEPRAZOLE. [Concomitant]
     Active Substance: OMEPRAZOLE
     Route: 042
  8. FUROSEMIDE. [Concomitant]
     Active Substance: FUROSEMIDE
     Route: 042
  9. CYMEVAN [Concomitant]
     Active Substance: GANCICLOVIR
     Route: 042
  10. FOLINATE DE CALCIUM [Concomitant]
     Active Substance: LEUCOVORIN CALCIUM
     Route: 042
  11. HEPARIN [Concomitant]
     Active Substance: HEPARIN SODIUM
     Route: 042
  12. MEROPENEM ANHYDROUS [Concomitant]
     Active Substance: MEROPENEM ANHYDROUS
     Route: 042
  13. ZARZIO [Concomitant]
     Active Substance: FILGRASTIM
     Route: 058
  14. YESCARTA [Suspect]
     Active Substance: AXICABTAGENE CILOLEUCEL
     Indication: HIGH-GRADE B-CELL LYMPHOMA
     Dosage: UNK
     Route: 042
     Dates: start: 20200512, end: 20200512
  15. VANCOMYCIN [Concomitant]
     Active Substance: VANCOMYCIN
     Route: 042
  16. LINEZOLIDE [Concomitant]
     Active Substance: LINEZOLID
     Route: 042
  17. NOXAFIL [Concomitant]
     Active Substance: POSACONAZOLE
     Route: 048

REACTIONS (2)
  - Cytokine release syndrome [Recovered/Resolved]
  - Immune effector cell-associated neurotoxicity syndrome [Recovered/Resolved]

NARRATIVE: CASE EVENT DATE: 20200524
